FAERS Safety Report 10950652 (Version 1)
Quarter: 2015Q1

REPORT INFORMATION
  Report Type: Spontaneous
  Country: US (occurrence: US)
  Receive Date: 20150324
  Receipt Date: 20150324
  Transmission Date: 20150721
  Serious: Yes (Other)
  Sender: FDA-Public Use
  Company Number: US-GLAXOSMITHKLINE-US2015037503

PATIENT

DRUGS (1)
  1. SEREVENT [Suspect]
     Active Substance: SALMETEROL XINAFOATE

REACTIONS (1)
  - Atrial fibrillation [Unknown]
